FAERS Safety Report 5206944-5 (Version None)
Quarter: 2007Q1

REPORT INFORMATION
  Report Type: 
  Country: None (occurrence: None)
  Receive Date: 20070112
  Receipt Date: 20070103
  Transmission Date: 20070707
  Serious: Yes (Hospitalization, Other)
  Sender: FDA-Public Use
  Company Number: GB-JNJFOC-20070100493

PATIENT
  Sex: Female
  Weight: 84 kg

DRUGS (6)
  1. REMICADE [Suspect]
     Indication: RHEUMATOID ARTHRITIS
     Route: 042
  2. LEFLUNOMIDE [Concomitant]
     Route: 065
  3. CO-CODAMOL [Concomitant]
     Route: 065
  4. COZAAR [Concomitant]
     Route: 065
  5. INDOCID [Concomitant]
     Route: 065
  6. LEVOTHYROXINE SODIUM [Concomitant]
     Route: 065

REACTIONS (3)
  - ARTHRALGIA [None]
  - MUSCULOSKELETAL PAIN [None]
  - MUSCULOSKELETAL STIFFNESS [None]
